FAERS Safety Report 19047875 (Version 4)
Quarter: 2021Q3

REPORT INFORMATION
  Report Type: Report from Study
  Country: US (occurrence: US)
  Receive Date: 20210323
  Receipt Date: 20210726
  Transmission Date: 20211014
  Serious: No
  Sender: FDA-Public Use
  Company Number: NVSC2021US062744

PATIENT
  Sex: Female

DRUGS (2)
  1. PROMACTA [Suspect]
     Active Substance: ELTROMBOPAG OLAMINE
     Dosage: 50 MG, QOD (EVERY OTHER DAY)
     Route: 048
  2. PROMACTA [Suspect]
     Active Substance: ELTROMBOPAG OLAMINE
     Indication: IMMUNE THROMBOCYTOPENIA
     Dosage: UNK
     Route: 065

REACTIONS (4)
  - Platelet count increased [Recovering/Resolving]
  - Incorrect dose administered [Unknown]
  - Fatigue [Unknown]
  - Insomnia [Unknown]
